FAERS Safety Report 9559601 (Version 1)
Quarter: 2013Q3

REPORT INFORMATION
  Report Type: Spontaneous
  Country: US (occurrence: None)
  Receive Date: 20130906
  Receipt Date: 20130906
  Transmission Date: 20140515
  Serious: Yes (Other)
  Sender: FDA-Public Use
  Company Number: 163-POMAL-13071621

PATIENT
  Age: 77 Year
  Sex: Male

DRUGS (9)
  1. POMALYST [Suspect]
     Indication: PLASMA CELL MYELOMA
     Route: 048
     Dates: start: 20121105
  2. ACYCLOVIR (ACICLOVIR) (ACICLOVIR) [Concomitant]
  3. ALBUTEROL SULFATE (SALBUTAMOL SULFATE) [Concomitant]
  4. BABY ASPIRIN (ACETYLSALICYLIC ACID) [Concomitant]
  5. CALCIUM PLUS VITAMIN D (CALCIUM D3 ^STADA^ ) [Concomitant]
  6. DEXAMETHASONE (DEXAMETHASONE0 [Concomitant]
  7. DOXYCYCLINE HYCLATE (DOXYCYCLINE HYCLATE) [Concomitant]
  8. FLOVENT HFA (FLUTICASONE PROPIONATE) [Concomitant]
  9. TAMSULOSIN HCL (TAMSULOSIN HYDROCHLORIDE0 [Concomitant]

REACTIONS (1)
  - Blood glucose increased [None]
